FAERS Safety Report 11294884 (Version 1)
Quarter: 2015Q3

REPORT INFORMATION
  Report Type: Report from Study
  Country: US (occurrence: US)
  Receive Date: 20150723
  Receipt Date: 20150723
  Transmission Date: 20151125
  Serious: Yes (Hospitalization, Disabling)
  Sender: FDA-Public Use
  Company Number: PHEH2015US009667

PATIENT
  Sex: Female

DRUGS (1)
  1. GILENYA [Suspect]
     Active Substance: FINGOLIMOD HYDROCHLORIDE
     Indication: PNEUMONIA
     Dosage: 0.5 MG, QD
     Route: 048
     Dates: start: 20140301, end: 20141001

REACTIONS (3)
  - Pneumonia [Unknown]
  - Off label use [Unknown]
  - White blood cell count decreased [Not Recovered/Not Resolved]
